FAERS Safety Report 17063640 (Version 3)
Quarter: 2020Q2

REPORT INFORMATION
  Report Type: Spontaneous
  Country: US (occurrence: US)
  Receive Date: 20191122
  Receipt Date: 20200501
  Transmission Date: 20200713
  Serious: No
  Sender: FDA-Public Use
  Company Number: US-VERTEX PHARMACEUTICALS-2019-011223

PATIENT
  Sex: Male
  Weight: 21 kg

DRUGS (1)
  1. SYMDEKO [Suspect]
     Active Substance: IVACAFTOR\TEZACAFTOR
     Indication: CYSTIC FIBROSIS
     Dosage: AT REGULAR DOSE
     Route: 048
     Dates: start: 20190815

REACTIONS (5)
  - Lethargy [Recovered/Resolved]
  - Product availability issue [Unknown]
  - Decreased appetite [Recovered/Resolved]
  - Product dose omission [Recovered/Resolved]
  - Productive cough [Recovering/Resolving]

NARRATIVE: CASE EVENT DATE: 2019
